FAERS Safety Report 25537112 (Version 3)
Quarter: 2025Q4

REPORT INFORMATION
  Report Type: Spontaneous
  Country: EU (occurrence: EU)
  Receive Date: 20250710
  Receipt Date: 20251124
  Transmission Date: 20260117
  Serious: Yes (Other)
  Sender: ALEXION PHARMACEUTICALS
  Company Number: EU-AstraZeneca-CH-00905251A

PATIENT
  Sex: Female

DRUGS (3)
  1. CAPIVASERTIB [Suspect]
     Active Substance: CAPIVASERTIB
     Indication: Hormone receptor positive breast cancer
     Dosage: UNK
     Dates: start: 202503, end: 202506
  2. CAPIVASERTIB [Suspect]
     Active Substance: CAPIVASERTIB
     Indication: HER2 negative breast cancer
  3. CAPIVASERTIB [Suspect]
     Active Substance: CAPIVASERTIB
     Indication: PIK3CA-activated mutation

REACTIONS (4)
  - Metastases to liver [Unknown]
  - Drug ineffective [Unknown]
  - Fatigue [Unknown]
  - Rash [Unknown]
